FAERS Safety Report 5404387-2 (Version None)
Quarter: 2007Q3

REPORT INFORMATION
  Report Type: 
  Country: None (occurrence: None)
  Receive Date: 20070802
  Receipt Date: 20070724
  Transmission Date: 20080115
  Serious: Yes (Other)
  Sender: FDA-Public Use
  Company Number: US-PFIZER INC-2007046821

PATIENT
  Sex: Female

DRUGS (6)
  1. CHANTIX [Suspect]
  2. PLAVIX [Concomitant]
  3. GLUCOPHAGE [Concomitant]
  4. XANAX [Concomitant]
  5. FOLIC ACID [Concomitant]
  6. ALL OTHER THERAPEUTIC PRODUCTS [Concomitant]

REACTIONS (1)
  - BLOOD GLUCOSE INCREASED [None]
